FAERS Safety Report 7834574-5 (Version None)
Quarter: 2011Q4

REPORT INFORMATION
  Report Type: 
  Country: None (occurrence: None)
  Receive Date: 20111024
  Receipt Date: 20111014
  Transmission Date: 20120403
  Serious: Yes (Disabling)
  Sender: FDA-Public Use
  Company Number: US-MERCK-1104USA03000

PATIENT
  Age: 27 Year
  Sex: Male

DRUGS (2)
  1. PROPECIA [Suspect]
     Route: 048
  2. PROPECIA [Suspect]
     Indication: ANDROGENETIC ALOPECIA
     Route: 048
     Dates: start: 20090701, end: 20101001

REACTIONS (4)
  - ERECTILE DYSFUNCTION [None]
  - ORGASMIC SENSATION DECREASED [None]
  - ANXIETY [None]
  - EMOTIONAL DISTRESS [None]
